FAERS Safety Report 6662113-3 (Version None)
Quarter: 2010Q1

REPORT INFORMATION
  Report Type: 
  Country: None (occurrence: None)
  Receive Date: 20100329
  Receipt Date: 20100317
  Transmission Date: 20100710
  Serious: Yes (Hospitalization)
  Sender: FDA-Public Use
  Company Number: 2009AC000151

PATIENT
  Age: 66 Year
  Sex: Male
  Weight: 81.1939 kg

DRUGS (43)
  1. DIGOXIN [Suspect]
     Indication: ATRIAL FIBRILLATION
     Dosage: 0.25 MG; QHS; PO
     Route: 048
     Dates: start: 20071219, end: 20071227
  2. DIGOXIN [Suspect]
     Dosage: 0.25 MG; QD; PO
     Route: 048
     Dates: start: 20080111, end: 20090801
  3. METOPROLOL TARTRATE [Concomitant]
  4. RAMIPRIL [Concomitant]
  5. CRESTOR [Concomitant]
  6. FLOMAX [Concomitant]
  7. BISOPROLOL [Concomitant]
  8. COLCHICINE [Concomitant]
  9. MEPHYTON [Concomitant]
  10. WARFARIN [Concomitant]
  11. PROPAFENONE HCL [Concomitant]
  12. DESONIDE [Concomitant]
  13. ALBUTEROL [Concomitant]
  14. CLARITHROMYCIN [Concomitant]
  15. ROSUVASTATIN [Concomitant]
  16. FINASTERIDE [Concomitant]
  17. CEPHALEXIN [Concomitant]
  18. TAMSULOSIN HCL [Concomitant]
  19. DILTIAZEM HCL [Concomitant]
  20. FLOMAX [Concomitant]
  21. FLUTICASONE PROPIONATE [Concomitant]
  22. HYTRIN [Concomitant]
  23. HYRDROCODONE/APAP [Concomitant]
  24. ZOCOR [Concomitant]
  25. LISINOPRIL [Concomitant]
  26. NORVASC [Concomitant]
  27. TUSSIONEX [Concomitant]
  28. DYNACIRC CR [Concomitant]
  29. AMOXICILLIN [Concomitant]
  30. TERAZOSIN HCL [Concomitant]
  31. AZITHROMYCIN [Concomitant]
  32. KETEK [Concomitant]
  33. SKELAXIN [Concomitant]
  34. SILVER SULFADIAZINE [Concomitant]
  35. ALTACE [Concomitant]
  36. VERDESO [Concomitant]
  37. SIMVASTATIN [Concomitant]
  38. DESOXIMETASONE [Concomitant]
  39. PROPAFENONE HCL [Concomitant]
  40. MEPHYTON [Concomitant]
  41. AMINOBEZ [Concomitant]
  42. WARFARIN [Concomitant]
  43. PROPAFENONE HCL [Concomitant]

REACTIONS (17)
  - ATRIAL FIBRILLATION [None]
  - BUNDLE BRANCH BLOCK LEFT [None]
  - BUNDLE BRANCH BLOCK RIGHT [None]
  - CEREBROVASCULAR ACCIDENT [None]
  - COAGULOPATHY [None]
  - CONTUSION [None]
  - DELAYED SLEEP PHASE [None]
  - DIZZINESS [None]
  - HAEMOPTYSIS [None]
  - HEMIANOPIA [None]
  - HYPERLIPIDAEMIA [None]
  - INJURY [None]
  - LUNG DISORDER [None]
  - PALPITATIONS [None]
  - SICK SINUS SYNDROME [None]
  - SLEEP APNOEA SYNDROME [None]
  - WEIGHT DECREASED [None]
